FAERS Safety Report 19729365 (Version 2)
Quarter: 2021Q3

REPORT INFORMATION
  Report Type: Spontaneous
  Country: ET (occurrence: ET)
  Receive Date: 20210820
  Receipt Date: 20210928
  Transmission Date: 20211014
  Serious: Yes (Other)
  Sender: FDA-Public Use
  Company Number: ET-VIIV HEALTHCARE LIMITED-ET2021GSK175760

PATIENT
  Age: 49 Year
  Sex: Female

DRUGS (4)
  1. DOLUTEGRAVIR [Suspect]
     Active Substance: DOLUTEGRAVIR
     Indication: HIV INFECTION
     Dosage: UNK
  2. LAMIVUDINE HIV [Concomitant]
     Active Substance: LAMIVUDINE
     Indication: HIV INFECTION
     Dosage: UNK
  3. TENOFOVIR DISOPROXIL FUMARATE. [Concomitant]
     Active Substance: TENOFOVIR DISOPROXIL FUMARATE
     Indication: HIV INFECTION
     Dosage: UNK
  4. COTRIMOXAZOLE [Concomitant]
     Active Substance: SULFAMETHOXAZOLE\TRIMETHOPRIM
     Indication: PROPHYLAXIS
     Dosage: UNK

REACTIONS (8)
  - Polydipsia [Recovered/Resolved]
  - Fatigue [Recovered/Resolved]
  - Type 2 diabetes mellitus [Unknown]
  - Glycosuria [Recovered/Resolved]
  - Hyperglycaemia [Recovered/Resolved]
  - Vision blurred [Recovered/Resolved]
  - Proteinuria [Recovered/Resolved]
  - Polyuria [Recovered/Resolved]
